FAERS Safety Report 9859291 (Version 3)
Quarter: 2014Q3

REPORT INFORMATION
  Report Type: Spontaneous
  Country: BR (occurrence: BR)
  Receive Date: 20140131
  Receipt Date: 20140818
  Transmission Date: 20150326
  Serious: Yes (Other)
  Sender: FDA-Public Use
  Company Number: BR-PFIZER INC-2013155463

PATIENT
  Age: 55 Year
  Sex: Female

DRUGS (4)
  1. SUTENT [Suspect]
     Active Substance: SUNITINIB MALATE
     Dosage: 25 MG, DAILY (CYCLE 4 PER 2)
  2. SUTENT [Suspect]
     Active Substance: SUNITINIB MALATE
     Indication: PANCREATIC NEUROENDOCRINE TUMOUR
     Dosage: 50 MG, DAILY (CYCLE 4 PER 2)
     Route: 048
     Dates: start: 20130507
  3. SUTENT [Suspect]
     Active Substance: SUNITINIB MALATE
     Dosage: 75 MG (TWO CAPSULES OF 37.5MG), 1X/DAY
     Route: 048
  4. ATENOLOL. [Concomitant]
     Active Substance: ATENOLOL
     Dosage: 1 TABLET OF 25 MG, DAILY

REACTIONS (3)
  - Pancytopenia [Unknown]
  - Platelet count decreased [Unknown]
  - Ageusia [Not Recovered/Not Resolved]

NARRATIVE: CASE EVENT DATE: 2013
